FAERS Safety Report 9011943 (Version 1)
Quarter: 2013Q1

REPORT INFORMATION
  Report Type: Spontaneous
  Country: US (occurrence: US)
  Receive Date: 20130107
  Receipt Date: 20130107
  Transmission Date: 20140127
  Serious: Yes (Other)
  Sender: FDA-Public Use
  Company Number: US-009507513-1301USA002223

PATIENT
  Age: 46 Year
  Sex: Male

DRUGS (4)
  1. SINGULAIR [Suspect]
     Indication: PRODUCT USED FOR UNKNOWN INDICATION
     Dosage: 10 MG, QD
     Route: 048
  2. SERETIDE [Suspect]
     Route: 055
  3. RHINOCORT (BECLOMETASONE DIPROPIONATE) [Suspect]
     Dosage: 64 MICROGRAM, QD
     Route: 045
  4. VENTOLIN (ALBUTEROL SULFATE) [Suspect]
     Route: 055

REACTIONS (3)
  - Sensory loss [Unknown]
  - Paraesthesia [Unknown]
  - Musculoskeletal pain [Unknown]
